FAERS Safety Report 5103070-0 (Version None)
Quarter: 2006Q3

REPORT INFORMATION
  Report Type: 
  Country: None (occurrence: None)
  Receive Date: 20060907
  Receipt Date: 20060824
  Transmission Date: 20061208
  Serious: Yes (Other)
  Sender: FDA-Public Use
  Company Number: A-JP2006-12822

PATIENT
  Age: 44 Year
  Sex: Female
  Weight: 45 kg

DRUGS (13)
  1. TRACLEER [Suspect]
     Indication: PULMONARY HYPERTENSION
     Dosage: SEE IMAGE
     Route: 048
     Dates: start: 20060309, end: 20060315
  2. TRACLEER [Suspect]
     Indication: PULMONARY HYPERTENSION
     Dosage: SEE IMAGE
     Route: 048
     Dates: start: 20060316, end: 20060407
  3. TRACLEER [Suspect]
     Indication: PULMONARY HYPERTENSION
     Dosage: SEE IMAGE
     Route: 048
     Dates: start: 20060408, end: 20060706
  4. TRACLEER [Suspect]
     Indication: PULMONARY HYPERTENSION
     Dosage: SEE IMAGE
     Route: 048
     Dates: start: 20060707, end: 20060714
  5. FAMOTIDINE [Suspect]
  6. EPOPROSTENOL SODIUM (EPOPROSTENOL SODIUM) [Suspect]
     Dates: start: 20060308
  7. LOPERAMIDE HCL [Concomitant]
  8. FUROSEMIDE [Concomitant]
  9. SUCRALFATE [Concomitant]
  10. LOXOPROFEN SODIUM (LOXOPROFEN SODIUM) [Concomitant]
  11. BIDIDOBACTERIUM [Concomitant]
  12. LORATADINE [Concomitant]
  13. L-ASPARTATE POTASSIUM [Concomitant]

REACTIONS (8)
  - ALANINE AMINOTRANSFERASE INCREASED [None]
  - ASPARTATE AMINOTRANSFERASE INCREASED [None]
  - BLOOD BILIRUBIN INCREASED [None]
  - GASTRITIS [None]
  - HEPATIC FUNCTION ABNORMAL [None]
  - NAUSEA [None]
  - PLATELET COUNT DECREASED [None]
  - VOMITING [None]
